FAERS Safety Report 16161891 (Version 2)
Quarter: 2019Q2

REPORT INFORMATION
  Report Type: Spontaneous
  Country: JP (occurrence: JP)
  Receive Date: 20190405
  Receipt Date: 20190417
  Transmission Date: 20190711
  Serious: Yes (Hospitalization, Other)
  Sender: FDA-Public Use
  Company Number: JP-AMGEN-JPNSP2019053917

PATIENT
  Age: 75 Year
  Sex: Female

DRUGS (2)
  1. VECTIBIX [Suspect]
     Active Substance: PANITUMUMAB
     Indication: COLON CANCER
     Dosage: 6 MILLIGRAM/KILOGRAM, Q2WK
     Route: 041
     Dates: start: 201810
  2. IRINOTECAN HYDROCHLORIDE. [Suspect]
     Active Substance: IRINOTECAN HYDROCHLORIDE
     Indication: COLON CANCER
     Dosage: UNK
     Route: 041
     Dates: start: 201810

REACTIONS (3)
  - Interstitial lung disease [Not Recovered/Not Resolved]
  - Colon cancer [Unknown]
  - Disease progression [Unknown]

NARRATIVE: CASE EVENT DATE: 201902
